FAERS Safety Report 14867659 (Version 1)
Quarter: 2018Q2

REPORT INFORMATION
  Report Type: Other
  Country: IN (occurrence: IN)
  Receive Date: 20180508
  Receipt Date: 20180508
  Transmission Date: 20180711
  Serious: Yes (Death, Life-Threatening, Hospitalization, Other)
  Sender: FDA-Public Use
  Company Number: IN-DENTSPLY-2018SCDP000110

PATIENT
  Age: 65 Year
  Sex: Male

DRUGS (3)
  1. LIDOCAINE HCL [Suspect]
     Active Substance: LIDOCAINE HYDROCHLORIDE
     Dosage: 10 %, 50 MG, 5 SPRAYS; OROPHARYNX
  2. LIDOCAINE HCL [Suspect]
     Active Substance: LIDOCAINE HYDROCHLORIDE
     Indication: ANAESTHESIA
     Dosage: 2 % (9 ML) NASAL BRONCHOSCOPIC INSERTION
  3. LIDOCAINE HCL [Suspect]
     Active Substance: LIDOCAINE HYDROCHLORIDE
     Dosage: 2 %, 100 MG, FIVE MILLILITERS; INTRANASALLY

REACTIONS (4)
  - Ventricular tachycardia [Recovered/Resolved]
  - Cardiotoxicity [Recovered/Resolved]
  - Circulatory collapse [Recovered/Resolved]
  - Toxicity to various agents [Recovered/Resolved]
